FAERS Safety Report 15884054 (Version 3)
Quarter: 2019Q2

REPORT INFORMATION
  Report Type: Report from Study
  Country: US (occurrence: US)
  Receive Date: 20190129
  Receipt Date: 20190408
  Transmission Date: 20190711
  Serious: Yes (Death)
  Sender: FDA-Public Use
  Company Number: PHEH2019US003746

PATIENT
  Age: 74 Year
  Sex: Male

DRUGS (1)
  1. COSENTYX [Suspect]
     Active Substance: SECUKINUMAB
     Indication: PRODUCT USED FOR UNKNOWN INDICATION
     Dosage: 150 MG, QMO
     Route: 058
     Dates: start: 20170418, end: 20181120

REACTIONS (1)
  - Death [Fatal]

NARRATIVE: CASE EVENT DATE: 20190121
